FAERS Safety Report 5633487-7 (Version None)
Quarter: 2008Q1

REPORT INFORMATION
  Report Type: 
  Country: None (occurrence: None)
  Receive Date: 20080221
  Receipt Date: 20080212
  Transmission Date: 20080703
  Serious: Yes (Other)
  Sender: FDA-Public Use
  Company Number: DE-ROCHE-543270

PATIENT
  Age: 63 Year
  Sex: Male

DRUGS (4)
  1. BONIVA [Suspect]
     Indication: DRUG USE FOR UNKNOWN INDICATION
     Route: 042
     Dates: start: 20080102
  2. AVANDIA [Suspect]
     Route: 048
     Dates: start: 20060101, end: 20080127
  3. RAMIPRIL [Concomitant]
  4. VITAMINE D [Concomitant]

REACTIONS (6)
  - ARTERIOSPASM CORONARY [None]
  - BLEPHAROSPASM [None]
  - BLOOD GLUCOSE INCREASED [None]
  - CARDIAC FLUTTER [None]
  - DRUG INEFFECTIVE [None]
  - MALAISE [None]
